FAERS Safety Report 19481691 (Version 2)
Quarter: 2021Q3

REPORT INFORMATION
  Report Type: Other
  Country: US (occurrence: US)
  Receive Date: 20210701
  Receipt Date: 20210802
  Transmission Date: 20211014
  Serious: Yes (Other)
  Sender: FDA-Public Use
  Company Number: US-ROCHE-2858050

PATIENT
  Sex: Female

DRUGS (8)
  1. IRON [Concomitant]
     Active Substance: IRON
  2. CYMBALTA [Concomitant]
     Active Substance: DULOXETINE HYDROCHLORIDE
  3. XELODA [Suspect]
     Active Substance: CAPECITABINE
     Indication: COLON CANCER
     Dosage: 2 TABS EVERY 12 HOURS ON DAYS 1?15 OF 21 DAY CHEMOTHERAPY CYCLE FOR 8 CYCLES
     Route: 048
  4. FAMOTIDINE. [Concomitant]
     Active Substance: FAMOTIDINE
  5. DOCUSATE [Concomitant]
     Active Substance: DOCUSATE
  6. XELODA [Suspect]
     Active Substance: CAPECITABINE
     Indication: COLORECTAL CANCER METASTATIC
     Dosage: 3 TABS EVERY 12 HOURS ON DAYS 1?15 OF 21 DAY CHEMOTHERAPY CYCLE FOR 8 CYCLES
     Route: 048
  7. OXYCODONE [Concomitant]
     Active Substance: OXYCODONE
  8. ZOFRAN [Concomitant]
     Active Substance: ONDANSETRON HYDROCHLORIDE

REACTIONS (2)
  - Uterine cancer [Unknown]
  - Fatigue [Unknown]
